FAERS Safety Report 10537481 (Version 1)
Quarter: 2014Q4

REPORT INFORMATION
  Report Type: Spontaneous
  Country: US (occurrence: None)
  Receive Date: 20141022
  Receipt Date: 20141022
  Transmission Date: 20150529
  Serious: Yes (Death)
  Sender: FDA-Public Use
  Company Number: None

PATIENT
  Sex: Male

DRUGS (2)
  1. AFINITOR [Suspect]
     Active Substance: EVEROLIMUS
     Indication: PROSTATE CANCER
     Route: 048
     Dates: start: 20141007, end: 20141020
  2. AFINITOR [Suspect]
     Active Substance: EVEROLIMUS
     Indication: BLADDER CANCER
     Route: 048
     Dates: start: 20141007, end: 20141020

REACTIONS (1)
  - Death [None]
